FAERS Safety Report 8621801-X (Version None)
Quarter: 2012Q3

REPORT INFORMATION
  Report Type: 
  Country: None (occurrence: None)
  Receive Date: 20120821
  Receipt Date: 20120821
  Transmission Date: 20120928
  Serious: Yes (Disabling)
  Sender: FDA-Public Use
  Company Number: None

PATIENT
  Age: 51 Year
  Sex: Male
  Weight: 87.0906 kg

DRUGS (1)
  1. PROPECIA [Suspect]
     Indication: HAIR DISORDER
     Dosage: ONE, ONCE PER DAY, PO
     Route: 048
     Dates: start: 20080201, end: 20110201

REACTIONS (5)
  - PEYRONIE'S DISEASE [None]
  - DEPRESSION [None]
  - BREAST SWELLING [None]
  - SEXUAL DYSFUNCTION [None]
  - PAIN [None]
